FAERS Safety Report 9264098 (Version 2)
Quarter: 2013Q3

REPORT INFORMATION
  Report Type: Spontaneous
  Country: US (occurrence: US)
  Receive Date: 20130430
  Receipt Date: 20130803
  Transmission Date: 20140515
  Serious: Yes (Death, Hospitalization)
  Sender: FDA-Public Use
  Company Number: US-B.I. PHARMACEUTICALS,INC./RIDGEFIELD-2013-BI-11721BP

PATIENT
  Age: 86 Year
  Sex: Female
  Weight: 56.7 kg

DRUGS (11)
  1. PRADAXA [Suspect]
     Indication: ANTICOAGULANT THERAPY
     Dosage: 300 MG
     Route: 048
     Dates: start: 20110505, end: 20120111
  2. PRADAXA [Suspect]
     Indication: ATRIAL FIBRILLATION
  3. ASPIRIN [Concomitant]
     Dosage: 81 MG
     Route: 048
     Dates: end: 20120111
  4. LASIX [Concomitant]
     Dosage: 20 MG
     Route: 048
  5. IRON CR [Concomitant]
     Dosage: 65 MG
     Route: 048
  6. CRESTOR [Concomitant]
     Dosage: 10 MG
     Route: 048
  7. METFORMIN [Concomitant]
     Dosage: 1000 MG
     Route: 048
  8. LISINOPRIL [Concomitant]
     Dosage: 10 MG
     Route: 048
  9. CARVEDILOL [Concomitant]
     Dosage: 12.5 MG
     Route: 048
  10. MULTIVITAMIN [Concomitant]
     Route: 048
  11. ONGLYZA [Concomitant]
     Dosage: 5 MG
     Route: 048

REACTIONS (8)
  - Metabolic encephalopathy [Fatal]
  - Gastrointestinal haemorrhage [Recovered/Resolved]
  - Renal failure acute [Recovered/Resolved]
  - Hypotension [Not Recovered/Not Resolved]
  - Hyperkalaemia [Unknown]
  - Coagulopathy [Unknown]
  - Pericardial effusion [Unknown]
  - Pleural effusion [Unknown]
